FAERS Safety Report 12766356 (Version 3)
Quarter: 2016Q4

REPORT INFORMATION
  Report Type: Report from Study
  Country: JP (occurrence: JP)
  Receive Date: 20160921
  Receipt Date: 20161116
  Transmission Date: 20170207
  Serious: Yes (Death, Other)
  Sender: FDA-Public Use
  Company Number: JP-DSJP-DSJ-2016-130210

PATIENT

DRUGS (10)
  1. UNIPHYLLA [Concomitant]
     Active Substance: THEOPHYLLINE ANHYDROUS
     Dosage: 200MG/DAY
     Route: 048
     Dates: end: 20151231
  2. DIOVAN [Concomitant]
     Active Substance: VALSARTAN
     Dosage: 40MG/DAY
     Route: 048
     Dates: end: 20151231
  3. RIZE                               /00624801/ [Concomitant]
     Active Substance: CLOTIAZEPAM
     Dosage: 10MG/DAY
     Route: 048
     Dates: end: 20151231
  4. ALLEGRA [Concomitant]
     Active Substance: FEXOFENADINE HYDROCHLORIDE
     Dosage: 120MG/DAY
     Route: 048
     Dates: end: 20151231
  5. JANUVIA [Concomitant]
     Active Substance: SITAGLIPTIN PHOSPHATE
     Dosage: 50MG/DAY
     Route: 048
     Dates: end: 20151231
  6. URINORM [Concomitant]
     Active Substance: BENZBROMARONE
     Dosage: 25MG/DAY
     Route: 048
     Dates: end: 20151231
  7. PARIET [Concomitant]
     Active Substance: RABEPRAZOLE SODIUM
     Dosage: 10MG/DAY
     Route: 048
     Dates: end: 20151231
  8. EDOXABAN [Suspect]
     Active Substance: EDOXABAN TOSYLATE
     Indication: ATRIAL FIBRILLATION
     Dosage: 30 MG, QD
     Route: 048
     Dates: start: 20150622, end: 20151119
  9. CRESTOR [Concomitant]
     Active Substance: ROSUVASTATIN CALCIUM
     Dosage: 2.5MG/DAY
     Route: 048
     Dates: end: 20151231
  10. HERBESSER [Concomitant]
     Active Substance: DILTIAZEM HYDROCHLORIDE
     Dosage: 100MG/DAY
     Route: 048
     Dates: end: 20150210

REACTIONS (2)
  - Gastric cancer [Fatal]
  - Faeces discoloured [Recovering/Resolving]

NARRATIVE: CASE EVENT DATE: 201511
